FAERS Safety Report 20103125 (Version 3)
Quarter: 2022Q1

REPORT INFORMATION
  Report Type: Report from Study
  Country: BR (occurrence: None)
  Receive Date: 20211123
  Receipt Date: 20220211
  Transmission Date: 20220423
  Serious: Yes (Other)
  Sender: FDA-Public Use
  Company Number: BR-Merck Healthcare KGaA-9280887

PATIENT
  Age: 30 Year
  Sex: Male

DRUGS (5)
  1. MAVENCLAD [Suspect]
     Active Substance: CLADRIBINE
     Indication: Multiple sclerosis
     Dosage: YEAR ONE MONTH ONE THERAPY: ONE TABLET ON DAYS 1 TO 4 AND TWO TABLETS ON DAY 5
     Route: 048
     Dates: start: 20201102, end: 20201106
  2. MAVENCLAD [Suspect]
     Active Substance: CLADRIBINE
     Dosage: YEAR ONE MONTH TWO THERAPY: SIX TABLETS
     Route: 048
     Dates: start: 20201202, end: 20201206
  3. MAVENCLAD [Suspect]
     Active Substance: CLADRIBINE
     Dosage: YEAR TWO-MONTH ONE THERAPY: SIX TABLETS
     Route: 048
     Dates: start: 20211121
  4. MAVENCLAD [Suspect]
     Active Substance: CLADRIBINE
     Dosage: YEAR TWO MONTH TWO THERAPY: SIX TABLETS
     Route: 048
     Dates: start: 20211221
  5. ESCITALOPRAM [Concomitant]
     Active Substance: ESCITALOPRAM OXALATE
     Indication: Product used for unknown indication

REACTIONS (3)
  - Keratoconus [Unknown]
  - White blood cell count abnormal [Unknown]
  - Lymphocyte count decreased [Recovered/Resolved]

NARRATIVE: CASE EVENT DATE: 20211001
